FAERS Safety Report 21864678 (Version 1)
Quarter: 2023Q1

REPORT INFORMATION
  Report Type: Spontaneous
  Country: US (occurrence: US)
  Receive Date: 20230116
  Receipt Date: 20230116
  Transmission Date: 20230418
  Serious: No
  Sender: FDA-Public Use
  Company Number: US-drreddys-SPO/USA/22/0158955

PATIENT
  Age: 88 Year
  Sex: Female

DRUGS (10)
  1. LENALIDOMIDE [Suspect]
     Active Substance: LENALIDOMIDE
     Indication: Plasma cell myeloma
     Dosage: TAKE 1 CAPSULE BY MOUTH FOR 3 WEEKS ON AND 1 WEEK OFF IN A 28 DAY CYCLE
     Route: 048
     Dates: start: 20220623
  2. IBUPROFEN [Concomitant]
     Active Substance: IBUPROFEN
     Indication: Product used for unknown indication
  3. METOPROLOL SUCCINATE [Concomitant]
     Active Substance: METOPROLOL SUCCINATE
     Indication: Product used for unknown indication
  4. SIMVASTATIN [Concomitant]
     Active Substance: SIMVASTATIN
     Indication: Product used for unknown indication
  5. AMLODIPINE B TAB 5MG [Concomitant]
     Indication: Product used for unknown indication
  6. ASPIRIN 81 CHE 81MG [Concomitant]
     Indication: Product used for unknown indication
  7. MULTIVITAMIN TAB [Concomitant]
     Indication: Product used for unknown indication
  8. OLMESARTAN M TAB 40MG [Concomitant]
     Indication: Product used for unknown indication
  9. OXYBUTYNIN C TAB 5MG [Concomitant]
     Indication: Product used for unknown indication
  10. LEVOTHYROXIN TAB 100MCG [Concomitant]
     Indication: Product used for unknown indication

REACTIONS (3)
  - Asthenia [Unknown]
  - Influenza [Recovered/Resolved]
  - Product dose omission issue [Unknown]
